FAERS Safety Report 21028532 (Version 1)
Quarter: 2022Q2

REPORT INFORMATION
  Report Type: Spontaneous
  Country: US (occurrence: US)
  Receive Date: 20220630
  Receipt Date: 20220630
  Transmission Date: 20220720
  Serious: No
  Sender: FDA-Public Use
  Company Number: US-JNJFOC-20220654293

PATIENT
  Sex: Female

DRUGS (5)
  1. ZYRTEC [Suspect]
     Active Substance: CETIRIZINE HYDROCHLORIDE
     Indication: Immunisation reaction
     Dosage: 4X THE SUGGESTED DOSE FOR 3 MONTHS
     Route: 065
     Dates: start: 2022
  2. PEPCID [Suspect]
     Active Substance: FAMOTIDINE
     Indication: Immunisation reaction
     Dosage: 4X THE SUGGESTED DOSE
     Route: 065
     Dates: start: 2022
  3. XOLAIR [Concomitant]
     Active Substance: OMALIZUMAB
     Indication: Immune system disorder
     Dosage: MONTHLY
     Route: 065
  4. EPIPEN [Concomitant]
     Active Substance: EPINEPHRINE
     Indication: Polymers allergy
     Route: 065
  5. BENADRYL [Concomitant]
     Active Substance: DIPHENHYDRAMINE HYDROCHLORIDE
     Indication: Immunisation reaction
     Dosage: IN ADDITION TO THOSE MEDICATIONS FOR A LARGER FLARE UP.

REACTIONS (2)
  - Overdose [Unknown]
  - Product use in unapproved indication [Unknown]

NARRATIVE: CASE EVENT DATE: 20220101
